FAERS Safety Report 19560229 (Version 1)
Quarter: 2021Q3

REPORT INFORMATION
  Report Type: Spontaneous
  Country: SE (occurrence: SE)
  Receive Date: 20210716
  Receipt Date: 20210716
  Transmission Date: 20211014
  Serious: Yes (Disabling)
  Sender: FDA-Public Use
  Company Number: SE-TEVA-2021-SE-1932679

PATIENT
  Age: 44 Year
  Sex: Female
  Weight: 92 kg

DRUGS (3)
  1. BUPROPION EBB 150 MG TABLETT MED MODIFIERAD FRISATTNING [Concomitant]
     Dosage: 300 MILLIGRAM DAILY; 150 MG 2PCS / DAY
     Route: 048
     Dates: start: 1988
  2. PAROXETIN HEXAL 20 MG FILMDRAGERAD TABLETT [Concomitant]
     Dosage: 20 MILLIGRAM DAILY; 20 MG 1 / EVENING
     Route: 048
     Dates: start: 1988
  3. LAMOTRIGINE. [Suspect]
     Active Substance: LAMOTRIGINE
     Indication: DEPRESSION
     Dosage: 200MG 1ST / DAY
     Route: 048
     Dates: start: 1988

REACTIONS (6)
  - Muscular weakness [Recovered/Resolved]
  - Balance disorder [Recovered/Resolved]
  - Depressed mood [Recovered/Resolved with Sequelae]
  - Memory impairment [Recovering/Resolving]
  - Feeling abnormal [Recovering/Resolving]
  - Apathy [Recovering/Resolving]

NARRATIVE: CASE EVENT DATE: 19880101
